FAERS Safety Report 9961192 (Version 1)
Quarter: 2014Q1

REPORT INFORMATION
  Report Type: Spontaneous
  Country: US (occurrence: None)
  Receive Date: 20140127
  Receipt Date: 20140127
  Transmission Date: 20141002
  Serious: Yes (Other)
  Sender: FDA-Public Use
  Company Number: 1209886

PATIENT
  Age: 86 Year
  Sex: Female

DRUGS (7)
  1. ACTILYSE [Suspect]
     Indication: EMBOLIC STROKE
     Dosage: 61 MIN, DOSE:  5.7 MG BOLUS OVER 1 MIN, INTRAVENOUS BOLUS
     Route: 040
  2. LORAZEPAM (LORAZEPAM) [Concomitant]
  3. PHENYTOIN (PHENYTOIN) [Concomitant]
  4. MEOXIPRIL (MOEXIPRIL HYDORCHLORIDE) [Concomitant]
  5. NITROGLYCERINE (NITROGLYCERIN) [Concomitant]
  6. DIGOXIN (DIGOXIN) [Concomitant]
  7. FUROSEMIDE (FUROSEMIDE) [Concomitant]

REACTIONS (2)
  - Haemorrhagic transformation stroke [None]
  - Ischaemic stroke [None]
